FAERS Safety Report 15301643 (Version 2)
Quarter: 2018Q3

REPORT INFORMATION
  Report Type: Spontaneous
  Country: GB (occurrence: GB)
  Receive Date: 20180821
  Receipt Date: 20180821
  Transmission Date: 20181010
  Serious: Yes (Life-Threatening, Hospitalization, Other)
  Sender: FDA-Public Use
  Company Number: GB-LINDE-GB-LHC-2018200

PATIENT
  Age: 65 Year
  Sex: Female
  Weight: 55 kg

DRUGS (2)
  1. NITROUS OXIDE. [Suspect]
     Active Substance: NITROUS OXIDE
     Indication: MAINTENANCE OF ANAESTHESIA
     Route: 055
  2. OXYGEN. [Concomitant]
     Active Substance: OXYGEN
     Indication: MAINTENANCE OF ANAESTHESIA
     Route: 055

REACTIONS (3)
  - Drug interaction [Recovered/Resolved]
  - Electrocardiogram QT prolonged [Unknown]
  - Ventricular tachycardia [Recovered/Resolved]
